FAERS Safety Report 13153888 (Version 2)
Quarter: 2017Q1

REPORT INFORMATION
  Report Type: Spontaneous
  Country: CA (occurrence: CA)
  Receive Date: 20170126
  Receipt Date: 20170208
  Transmission Date: 20170428
  Serious: Yes (Death, Other)
  Sender: FDA-Public Use
  Company Number: CA-BAYER-2016-233204

PATIENT
  Sex: Female

DRUGS (2)
  1. ALEVE BACK AND BODY PAIN [Suspect]
     Active Substance: NAPROXEN SODIUM
     Dosage: UNK
  2. ALEVE [Suspect]
     Active Substance: NAPROXEN SODIUM
     Indication: ARTHRALGIA
     Dosage: UNK

REACTIONS (4)
  - Abdominal discomfort [None]
  - Drug ineffective [None]
  - Product physical issue [None]
  - Cerebrovascular accident [Fatal]
